FAERS Safety Report 23688462 (Version 1)
Quarter: 2024Q1

REPORT INFORMATION
  Report Type: Spontaneous
  Country: BR (occurrence: None)
  Receive Date: 20240329
  Receipt Date: 20240329
  Transmission Date: 20240410
  Serious: Yes (Other)
  Sender: FDA-Public Use
  Company Number: 2024A074849

PATIENT
  Age: 75 Year
  Sex: Female

DRUGS (2)
  1. XIGDUO XR [Suspect]
     Active Substance: DAPAGLIFLOZIN PROPANEDIOL\METFORMIN HYDROCHLORIDE
     Indication: Diabetes mellitus
     Route: 048
  2. METHOTREXATE [Concomitant]
     Active Substance: METHOTREXATE
     Indication: Rheumatic disorder

REACTIONS (5)
  - Arthropathy [Unknown]
  - Diabetes mellitus inadequate control [Unknown]
  - Intervertebral disc protrusion [Unknown]
  - Weight decreased [Recovered/Resolved]
  - Off label use [Unknown]
